FAERS Safety Report 16753820 (Version 1)
Quarter: 2019Q3

REPORT INFORMATION
  Report Type: Spontaneous
  Country: RS (occurrence: RS)
  Receive Date: 20190829
  Receipt Date: 20190829
  Transmission Date: 20191005
  Serious: Yes (Hospitalization)
  Sender: FDA-Public Use
  Company Number: RS-KADMON PHARMACEUTICALS, LLC-KAD-201908-01475

PATIENT
  Sex: Female
  Weight: 70 kg

DRUGS (10)
  1. EXVIERA [Suspect]
     Active Substance: DASABUVIR
     Indication: HEPATITIS C
  2. VIEKIRAX [Suspect]
     Active Substance: OMBITASVIR\PARITAPREVIR\RITONAVIR
     Indication: HEPATIC CIRRHOSIS
     Dosage: 2 TABLETS
     Route: 048
     Dates: start: 20190612
  3. RIBAVIRIN. [Suspect]
     Active Substance: RIBAVIRIN
     Indication: HEPATITIS C
     Dosage: 2 TABLETS, 2 IN 1 DAY (4 TABLETS)
     Route: 048
  4. TEOFILIN [Concomitant]
     Active Substance: THEOPHYLLINE ANHYDROUS
     Indication: ASTHMA
     Dosage: 125 MG
     Route: 048
  5. PROPAFEN [Concomitant]
     Indication: ARRHYTHMIA
     Dosage: 300 MG (150 MG)
  6. BISOPROLOL/HYDROCHLORTIAZID [Concomitant]
     Indication: HYPERTENSION
     Dosage: 5 MG/12.5 MG
     Route: 048
  7. FOSINOPRIL-NATRIUM [Concomitant]
     Indication: HYPERTENSION
     Route: 048
  8. EXVIERA [Suspect]
     Active Substance: DASABUVIR
     Indication: HEPATIC CIRRHOSIS
     Route: 048
     Dates: start: 20190612
  9. VIEKIRAX [Suspect]
     Active Substance: OMBITASVIR\PARITAPREVIR\RITONAVIR
     Indication: HEPATITIS C
  10. RIBAVIRIN. [Suspect]
     Active Substance: RIBAVIRIN
     Indication: HEPATIC CIRRHOSIS
     Dosage: 2 TABLETS, 2 IN 1 DAY (4 TABLETS)
     Route: 048
     Dates: start: 20190612, end: 20190712

REACTIONS (3)
  - Hyperbilirubinaemia [Unknown]
  - Transaminases increased [Not Recovered/Not Resolved]
  - Anaemia [Recovered/Resolved]

NARRATIVE: CASE EVENT DATE: 2019
